FAERS Safety Report 5761113-5 (Version None)
Quarter: 2008Q2

REPORT INFORMATION
  Report Type: 
  Country: None (occurrence: None)
  Receive Date: 20080606
  Receipt Date: 20080528
  Transmission Date: 20081010
  Serious: Yes (Other)
  Sender: FDA-Public Use
  Company Number: US-BAYER-200812056BCC

PATIENT
  Age: 51 Year
  Sex: Female
  Weight: 67 kg

DRUGS (5)
  1. ALEVE (CAPLET) [Suspect]
     Indication: MUSCULOSKELETAL PAIN
     Dosage: AS USED: 440 MG  UNIT DOSE: 220 MG
     Route: 048
     Dates: start: 20080525, end: 20080525
  2. ALEVE (CAPLET) [Suspect]
     Dosage: TOTAL DAILY DOSE: 440 MG  UNIT DOSE: 220 MG
     Route: 048
     Dates: start: 20080527, end: 20080527
  3. LISINOPRIL [Concomitant]
  4. CATAPRES-TTS-2 [Concomitant]
     Route: 061
  5. NATURES BLEND MULTIVITAMIN [Concomitant]

REACTIONS (1)
  - BLOOD PRESSURE INCREASED [None]
